FAERS Safety Report 5942636-2 (Version None)
Quarter: 2008Q4

REPORT INFORMATION
  Report Type: 
  Country: None (occurrence: None)
  Receive Date: 20081103
  Receipt Date: 20081022
  Transmission Date: 20090506
  Serious: Yes (Hospitalization)
  Sender: FDA-Public Use
  Company Number: GXKR2008AU10194

PATIENT
  Sex: Male

DRUGS (5)
  1. CIPROFLOXACIN [Suspect]
     Indication: SEPSIS
     Dosage: INTRAVENOUS; 500 MG, BID, ORAL
     Route: 048
     Dates: start: 20080923
  2. AMOXICILLIN + CLAVULANIC ACID (AMOXICILLIN, CLAVULANIC ACID) [Concomitant]
  3. ENDONE (OXYCODONE HYDROCHLORIDE) [Concomitant]
  4. PREDNISONE [Concomitant]
  5. PARACETAMOL (PARACEMTAMOL) [Concomitant]

REACTIONS (4)
  - FALL [None]
  - FEMUR FRACTURE [None]
  - MUSCULOSKELETAL PAIN [None]
  - PERONEAL NERVE PALSY [None]
